FAERS Safety Report 9030255 (Version 4)
Quarter: 2013Q2

REPORT INFORMATION
  Report Type: Spontaneous
  Country: US (occurrence: US)
  Receive Date: 20130122
  Receipt Date: 20130516
  Transmission Date: 20140414
  Serious: Yes (Other)
  Sender: FDA-Public Use
  Company Number: US-ASTRAZENECA-2013SE03500

PATIENT
  Age: 74 Year
  Sex: Female
  Weight: 90.7 kg

DRUGS (20)
  1. OMEPRAZOLE [Suspect]
     Indication: GASTRIC DISORDER
     Route: 048
     Dates: start: 2010
  2. OMEPRAZOLE [Suspect]
     Indication: GASTRITIS PROPHYLAXIS
     Route: 048
     Dates: start: 2010
  3. CRESTOR [Suspect]
     Indication: BLOOD CHOLESTEROL INCREASED
     Dosage: EITHER 20 MG OR 40 MG DAILY AT NIGHT
     Route: 048
     Dates: start: 2006, end: 201211
  4. CRESTOR [Suspect]
     Indication: BLOOD CHOLESTEROL INCREASED
     Route: 048
  5. NEXIUM [Suspect]
     Indication: DIVERTICULITIS
     Route: 048
     Dates: start: 2005
  6. NEXIUM [Suspect]
     Indication: GASTRITIS PROPHYLAXIS
     Route: 048
     Dates: start: 2005
  7. FUROSEMIDE [Concomitant]
     Indication: DIURETIC THERAPY
     Route: 048
  8. LILLY INSULIN [Concomitant]
     Indication: DIABETES MELLITUS
     Dosage: 60 UNITS 2 SHOT BID
     Dates: start: 2000
  9. ISOSORBIDE MONONITRATE [Concomitant]
     Indication: CARDIAC DISORDER
     Route: 048
  10. ALLOPURINOL [Concomitant]
     Indication: GOUT
     Route: 048
     Dates: start: 201208
  11. BABY ASPIRIN [Concomitant]
     Indication: CARDIAC DISORDER
     Dosage: LOW DOSE COATED, 81 MG DAILY
     Route: 048
     Dates: start: 1999
  12. GABAPENTIN [Concomitant]
     Indication: NEUROPATHY PERIPHERAL
     Route: 048
  13. HYDROCONE [Concomitant]
     Indication: BACK PAIN
     Dosage: 0.5 AND 0.500 PRN
     Route: 048
  14. HYDROCONE [Concomitant]
     Indication: BACK PAIN
     Dosage: 0.5 PILL PRN
     Route: 048
  15. GARLIC VITAMIN [Concomitant]
     Indication: VITAMIN SUPPLEMENTATION
     Route: 048
  16. GARLIC VITAMIN [Concomitant]
     Indication: VITAMIN SUPPLEMENTATION
     Route: 048
  17. VITAMIN E [Concomitant]
     Indication: VITAMIN SUPPLEMENTATION
     Dosage: 400 U, DAILY
     Route: 048
  18. VITAMIN E [Concomitant]
     Indication: VITAMIN SUPPLEMENTATION
     Route: 048
  19. VITAMIN D3 [Concomitant]
     Indication: VITAMIN SUPPLEMENTATION
     Dosage: 1000 U, DAILY
     Route: 048
     Dates: start: 2000
  20. VITAMIN D3 [Concomitant]
     Indication: VITAMIN SUPPLEMENTATION
     Route: 048

REACTIONS (19)
  - Renal failure chronic [Unknown]
  - Lumbar vertebral fracture [Unknown]
  - Fall [Unknown]
  - Weight increased [Unknown]
  - Body height decreased [Unknown]
  - Swelling [Unknown]
  - Back pain [Unknown]
  - Chest pain [Unknown]
  - Musculoskeletal discomfort [Unknown]
  - Blood glucose decreased [Unknown]
  - Gout [Unknown]
  - Dyspnoea [Unknown]
  - Dyspepsia [Unknown]
  - Weight decreased [Unknown]
  - Malaise [Unknown]
  - Gait disturbance [Unknown]
  - Fluid retention [Unknown]
  - Tremor [Unknown]
  - Drug dose omission [Not Recovered/Not Resolved]
